FAERS Safety Report 4740624-5 (Version None)
Quarter: 2005Q3

REPORT INFORMATION
  Report Type: 
  Country: None (occurrence: None)
  Receive Date: 20050810
  Receipt Date: 20030929
  Transmission Date: 20060218
  Serious: Yes (Hospitalization, Disabling, Other)
  Sender: FDA-Public Use
  Company Number: US-MERCK-0310USA00134

PATIENT
  Age: 73 Year
  Sex: Female
  Weight: 136 kg

DRUGS (10)
  1. VIOXX [Suspect]
     Indication: ARTHRITIS
     Route: 048
     Dates: start: 19990819, end: 20010801
  2. VIOXX [Suspect]
     Route: 048
     Dates: start: 20020813
  3. VIOXX [Suspect]
     Indication: PAIN
     Route: 048
     Dates: start: 19990819, end: 20010801
  4. VIOXX [Suspect]
     Route: 048
     Dates: start: 20020813
  5. PRINIVIL [Concomitant]
     Route: 065
  6. K-DUR 10 [Concomitant]
     Route: 065
  7. LORTAB [Concomitant]
     Route: 065
  8. COUMADIN [Concomitant]
     Route: 065
  9. [THERAPY UNSPECIFIED] [Concomitant]
     Route: 065
  10. LASIX [Concomitant]
     Route: 065

REACTIONS (62)
  - ABDOMINAL WALL MASS [None]
  - ANOREXIA [None]
  - ANXIETY [None]
  - ARTHRITIS [None]
  - ASTHENIA [None]
  - ATHEROSCLEROSIS [None]
  - AURAL POLYP [None]
  - BACK PAIN [None]
  - BLISTER [None]
  - BLOOD PRESSURE INCREASED [None]
  - BRONCHITIS [None]
  - BURSITIS [None]
  - CARDIAC DISORDER [None]
  - CAUSTIC INJURY [None]
  - CHEST PAIN [None]
  - CONSTIPATION [None]
  - DEPRESSION [None]
  - DIASTOLIC DYSFUNCTION [None]
  - DIVERTICULUM INTESTINAL [None]
  - DIZZINESS [None]
  - DRUG ERUPTION [None]
  - DYSPHONIA [None]
  - DYSURIA [None]
  - ECCHYMOSIS [None]
  - EPISTAXIS [None]
  - FALL [None]
  - FREQUENT BOWEL MOVEMENTS [None]
  - GASTRITIS [None]
  - GLUCOSE TOLERANCE IMPAIRED [None]
  - GOUT [None]
  - HAEMORRHOIDS [None]
  - HEADACHE [None]
  - HELICOBACTER INFECTION [None]
  - HYPERTENSION [None]
  - HYPOAESTHESIA [None]
  - INSOMNIA [None]
  - INTERVERTEBRAL DISC DEGENERATION [None]
  - INTERVERTEBRAL DISC PROTRUSION [None]
  - JOINT CREPITATION [None]
  - KIDNEY INFECTION [None]
  - LABYRINTHITIS [None]
  - MIDDLE EAR DISORDER [None]
  - MUSCLE STRAIN [None]
  - NASOPHARYNGEAL DISORDER [None]
  - NASOPHARYNGITIS [None]
  - NAUSEA [None]
  - OEDEMA PERIPHERAL [None]
  - OSTEOARTHRITIS [None]
  - OTITIS MEDIA [None]
  - PAIN [None]
  - PHARYNGITIS [None]
  - POLYARTHRITIS [None]
  - RASH [None]
  - RHINITIS [None]
  - SINUSITIS [None]
  - SLEEP DISORDER [None]
  - STOMACH DISCOMFORT [None]
  - SYNCOPE [None]
  - TRICUSPID VALVE INCOMPETENCE [None]
  - VERTIGO [None]
  - VISION BLURRED [None]
  - VOMITING [None]
